FAERS Safety Report 7752678-2 (Version None)
Quarter: 2011Q3

REPORT INFORMATION
  Report Type: 
  Country: None (occurrence: None)
  Receive Date: 20110915
  Receipt Date: 20110909
  Transmission Date: 20111222
  Serious: Yes (Other)
  Sender: FDA-Public Use
  Company Number: IE-PFIZER INC-2011180772

PATIENT
  Age: 31 Year
  Sex: Female
  Weight: 55 kg

DRUGS (1)
  1. LYRICA [Suspect]
     Indication: NEURALGIA
     Dosage: 75 MG, 2X/DAY
     Route: 048
     Dates: start: 20100801

REACTIONS (10)
  - LETHARGY [None]
  - APPETITE DISORDER [None]
  - ANXIETY [None]
  - MOOD ALTERED [None]
  - ABDOMINAL DISCOMFORT [None]
  - DRUG WITHDRAWAL SYNDROME [None]
  - NAUSEA [None]
  - HEADACHE [None]
  - INSOMNIA [None]
  - DRY MOUTH [None]
